FAERS Safety Report 11053440 (Version 2)
Quarter: 2015Q2

REPORT INFORMATION
  Report Type: Spontaneous
  Country: US (occurrence: US)
  Receive Date: 20150421
  Receipt Date: 20150525
  Transmission Date: 20150821
  Serious: No
  Sender: FDA-Public Use
  Company Number: US-JNJFOC-20130711437

PATIENT
  Sex: Female

DRUGS (2)
  1. COGENTIN [Concomitant]
     Active Substance: BENZTROPINE MESYLATE
     Route: 065
  2. RISPERDAL CONSTA [Suspect]
     Active Substance: RISPERIDONE
     Indication: SCHIZOPHRENIA
     Route: 030
     Dates: end: 20130715

REACTIONS (3)
  - Paranoia [Not Recovered/Not Resolved]
  - Delusion [Not Recovered/Not Resolved]
  - Mental impairment [Not Recovered/Not Resolved]

NARRATIVE: CASE EVENT DATE: 20130716
